FAERS Safety Report 9398902 (Version 1)
Quarter: 2013Q3

REPORT INFORMATION
  Report Type: Spontaneous
  Country: DE (occurrence: DE)
  Receive Date: 20130712
  Receipt Date: 20130712
  Transmission Date: 20140515
  Serious: Yes (Other)
  Sender: FDA-Public Use
  Company Number: DE-PFIZER INC-2013203289

PATIENT
  Age: 78 Year
  Sex: Male

DRUGS (1)
  1. XALATAN [Suspect]
     Indication: INTRAOCULAR PRESSURE INCREASED
     Dosage: 0.005%

REACTIONS (6)
  - Ocular hyperaemia [Unknown]
  - Eye irritation [Unknown]
  - Pulmonary arterial pressure increased [Unknown]
  - Vision blurred [Unknown]
  - Skin disorder [Unknown]
  - Fatigue [Unknown]
